FAERS Safety Report 11155453 (Version 1)
Quarter: 2015Q2

REPORT INFORMATION
  Report Type: Spontaneous
  Country: US (occurrence: US)
  Receive Date: 20150602
  Receipt Date: 20150602
  Transmission Date: 20150821
  Serious: Yes (Other)
  Sender: FDA-Public Use
  Company Number: US-ASTRAZENECA-2014SE31173

PATIENT
  Age: 20088 Day
  Sex: Female
  Weight: 142 kg

DRUGS (45)
  1. HYDROCORTISONE. [Concomitant]
     Active Substance: HYDROCORTISONE
     Dates: start: 20110426
  2. METFORMIN [Concomitant]
     Active Substance: METFORMIN HYDROCHLORIDE
     Route: 048
     Dates: start: 20110621
  3. PREGABALIN. [Concomitant]
     Active Substance: PREGABALIN
     Route: 048
     Dates: start: 20110621
  4. CYCLOBENZAPRINE HCL [Concomitant]
     Active Substance: CYCLOBENZAPRINE HYDROCHLORIDE
     Dates: start: 20060809
  5. FUROSEMIDE. [Concomitant]
     Active Substance: FUROSEMIDE
     Dates: start: 20070619
  6. SYNTHROID [Concomitant]
     Active Substance: LEVOTHYROXINE SODIUM
     Dates: start: 20110622
  7. TERBINAFINE HYDOCHLORIDE [Concomitant]
     Active Substance: TERBINAFINE HYDROCHLORIDE
     Dates: start: 20120222
  8. KLOR-CON [Concomitant]
     Active Substance: POTASSIUM CHLORIDE
     Dates: start: 20120321
  9. BYETTA [Suspect]
     Active Substance: EXENATIDE
     Indication: TYPE 2 DIABETES MELLITUS
     Route: 065
     Dates: start: 20070619
  10. BYETTA [Suspect]
     Active Substance: EXENATIDE
     Indication: TYPE 2 DIABETES MELLITUS
     Route: 065
     Dates: start: 20080305
  11. NAPROXEN SODIUM/ ALEVE [Concomitant]
     Dates: start: 19980227
  12. LEVEMIR [Concomitant]
     Active Substance: INSULIN DETEMIR
     Dosage: 100 UNITS/ML
     Dates: start: 20110505
  13. BYETTA [Suspect]
     Active Substance: EXENATIDE
     Indication: TYPE 2 DIABETES MELLITUS
     Route: 065
     Dates: start: 20100106
  14. FOLIC ACID. [Concomitant]
     Active Substance: FOLIC ACID
     Dates: start: 20110426
  15. VALSARTAN. [Concomitant]
     Active Substance: VALSARTAN
     Route: 048
     Dates: start: 20110621
  16. NABUMETONE. [Concomitant]
     Active Substance: NABUMETONE
     Dates: start: 19991026
  17. HYDROCODON/ IBUPROFEN [Concomitant]
     Dosage: 7.5/200, THREE TIMES A DAY
     Dates: start: 20060807
  18. HUMALOG [Concomitant]
     Active Substance: INSULIN LISPRO
     Dosage: 100 UNITS/ ML
     Dates: start: 20110505
  19. BYETTA [Suspect]
     Active Substance: EXENATIDE
     Indication: TYPE 2 DIABETES MELLITUS
     Route: 065
     Dates: start: 20090707
  20. TIGAN [Concomitant]
     Active Substance: TRIMETHOBENZAMIDE HYDROCHLORIDE
     Dates: start: 20110621
  21. MICARDIS [Concomitant]
     Active Substance: TELMISARTAN
     Dates: start: 20050723
  22. BYETTA [Suspect]
     Active Substance: EXENATIDE
     Indication: TYPE 2 DIABETES MELLITUS
     Route: 065
     Dates: start: 20070120
  23. STARLIX [Concomitant]
     Active Substance: NATEGLINIDE
     Dates: start: 20110426
  24. HEPARIN [Concomitant]
     Active Substance: HEPARIN SODIUM
     Route: 058
     Dates: start: 20110621
  25. ZOLPIDEM/ AMBIEN [Concomitant]
     Route: 048
     Dates: start: 20110621
  26. PENICILLIN VK [Concomitant]
     Active Substance: PENICILLIN V POTASSIUM
     Dates: start: 19970227
  27. ARTHROTEC [Concomitant]
     Active Substance: DICLOFENAC SODIUM\MISOPROSTOL
     Dates: start: 19980929
  28. AVANDIA [Concomitant]
     Active Substance: ROSIGLITAZONE MALEATE
     Dates: start: 20071031
  29. METOLAZONE/ METENIX [Concomitant]
     Dates: start: 20080213
  30. METANX [Concomitant]
     Active Substance: LEVOMEFOLATE CALCIUM\METHYLCOBALAMIN\PYRIDOXAL PHOSPHATE ANHYDROUS
     Dosage: 2/2.8/2, ONE TO TWO TABLETS DAILY
     Dates: start: 20080702
  31. BYETTA [Suspect]
     Active Substance: EXENATIDE
     Indication: TYPE 2 DIABETES MELLITUS
     Route: 065
     Dates: start: 20060913
  32. SELENIUM [Concomitant]
     Active Substance: SELENIUM
     Dates: start: 20110426
  33. ZOFRAN [Concomitant]
     Active Substance: ONDANSETRON HYDROCHLORIDE
     Dates: start: 20110621
  34. CORTISONE ACETATE. [Concomitant]
     Active Substance: CORTISONE ACETATE
     Dates: start: 20060913
  35. DICLOFENAC [Concomitant]
     Active Substance: DICLOFENAC
     Dates: start: 20080702
  36. BYETTA [Suspect]
     Active Substance: EXENATIDE
     Indication: TYPE 2 DIABETES MELLITUS
     Route: 065
     Dates: start: 20060928, end: 201005
  37. ZYRTEC [Concomitant]
     Active Substance: CETIRIZINE HYDROCHLORIDE
     Dates: start: 19970826
  38. TORSEMIDE. [Concomitant]
     Active Substance: TORSEMIDE
     Dates: start: 20080312
  39. URSODIOL. [Concomitant]
     Active Substance: URSODIOL
     Dates: start: 20090226
  40. VICTOZA [Concomitant]
     Active Substance: LIRAGLUTIDE
     Dosage: 18 MG/ 3 ML
     Dates: start: 20110720
  41. MULTIVITAMIN [Concomitant]
     Active Substance: VITAMINS
     Dates: start: 20110426
  42. CHROMIUM [Concomitant]
     Active Substance: CHROMIC CHLORIDE\CHROMIUM
     Dates: start: 20110426
  43. VITAMIN D [Concomitant]
     Active Substance: CHOLECALCIFEROL
     Dates: start: 20110426
  44. OSCAL [Concomitant]
     Active Substance: CALCIUM CARBONATE
     Dosage: EVERY EIGHT HOURS
     Route: 048
     Dates: start: 20110621
  45. L-THYROXINE [Concomitant]
     Active Substance: LEVOTHYROXINE
     Dates: start: 20061012

REACTIONS (5)
  - Goitre [Unknown]
  - Pituitary tumour benign [Unknown]
  - Hypothyroidism [Unknown]
  - Papillary thyroid cancer [Unknown]
  - Autoimmune thyroiditis [Unknown]

NARRATIVE: CASE EVENT DATE: 20110426
